FAERS Safety Report 11900815 (Version 1)
Quarter: 2016Q1

REPORT INFORMATION
  Report Type: Report from Study
  Country: US (occurrence: US)
  Receive Date: 20160108
  Receipt Date: 20160108
  Transmission Date: 20160526
  Serious: No
  Sender: FDA-Public Use
  Company Number: US-ABBVIE-15P-163-1451419-00

PATIENT
  Age: 67 Year
  Sex: Female

DRUGS (2)
  1. RIBAVIRIN. [Concomitant]
     Active Substance: RIBAVIRIN
     Indication: PRODUCT USED FOR UNKNOWN INDICATION
  2. VIEKIRA PAK [Suspect]
     Active Substance: DASABUVIR\OMBITASVIR\PARITAPREVIR\RITONAVIR
     Indication: HEPATITIS C
     Dosage: PER MANUFACTURERS PACKAGE DIRECTION, IN AM AND PM
     Route: 048
     Dates: start: 20150625, end: 20150927

REACTIONS (11)
  - Drug dose omission [Unknown]
  - White blood cell count decreased [Unknown]
  - Decreased interest [Unknown]
  - Nausea [Unknown]
  - Fatigue [Unknown]
  - Depressed mood [Unknown]
  - Rash papular [Unknown]
  - Tremor [Recovered/Resolved]
  - Vomiting [Recovered/Resolved]
  - Heat exhaustion [Unknown]
  - Pruritus [Unknown]

NARRATIVE: CASE EVENT DATE: 20150911
